FAERS Safety Report 10654157 (Version 2)
Quarter: 2017Q1

REPORT INFORMATION
  Report Type: Spontaneous
  Country: US (occurrence: US)
  Receive Date: 20141216
  Receipt Date: 20170207
  Transmission Date: 20170428
  Serious: Yes (Other)
  Sender: FDA-Public Use
  Company Number: US-ELI_LILLY_AND_COMPANY-US201412001551

PATIENT
  Sex: Female

DRUGS (4)
  1. CYMBALTA [Suspect]
     Active Substance: DULOXETINE HYDROCHLORIDE
     Dosage: 20 MG, UNK
     Route: 065
     Dates: start: 20081029
  2. CYMBALTA [Suspect]
     Active Substance: DULOXETINE HYDROCHLORIDE
     Indication: ANXIETY
     Dosage: UNK
     Route: 065
     Dates: start: 200701
  3. CYMBALTA [Suspect]
     Active Substance: DULOXETINE HYDROCHLORIDE
     Dosage: 90 MG, UNKNOWN
     Route: 065
     Dates: end: 20130110
  4. CYMBALTA [Suspect]
     Active Substance: DULOXETINE HYDROCHLORIDE
     Dosage: 60 MG, UNKNOWN
     Route: 065
     Dates: start: 20130110

REACTIONS (20)
  - Headache [Unknown]
  - Suicidal ideation [Unknown]
  - Tachyphrenia [Unknown]
  - Drug withdrawal syndrome [Unknown]
  - Photophobia [Unknown]
  - Irritable bowel syndrome [Unknown]
  - Cholecystitis [Recovered/Resolved]
  - Constipation [Unknown]
  - Feeling jittery [Unknown]
  - Dyspepsia [Unknown]
  - Decreased appetite [Unknown]
  - Paraesthesia [Unknown]
  - Nausea [Unknown]
  - Syncope [Unknown]
  - Irritability [Unknown]
  - Crying [Unknown]
  - Mood swings [Unknown]
  - Abdominal pain [Unknown]
  - Diarrhoea [Unknown]
  - Anxiety [Unknown]
